FAERS Safety Report 17397013 (Version 1)
Quarter: 2020Q1

REPORT INFORMATION
  Report Type: Spontaneous
  Country: DE (occurrence: DE)
  Receive Date: 20200210
  Receipt Date: 20200210
  Transmission Date: 20200409
  Serious: Yes (Other)
  Sender: FDA-Public Use
  Company Number: DE-US-PROVELL PHARMACEUTICALS LLC-E2B_90074657

PATIENT
  Age: 66 Year
  Sex: Female
  Weight: 83 kg

DRUGS (1)
  1. EUTHYROX [Suspect]
     Active Substance: LEVOTHYROXINE SODIUM
     Indication: HYPOTHYROIDISM
     Dosage: 100 UG / 75 UG / 100 UG / 112,5 UG / 125 UG (ATTEMPT FOR DOSE ADJUSTMENT)
     Route: 048
     Dates: start: 201909, end: 202001

REACTIONS (13)
  - Adverse reaction [Recovering/Resolving]
  - Dizziness [Recovering/Resolving]
  - Myxoedema [Recovering/Resolving]
  - Reaction to excipient [Unknown]
  - Palpitations [Recovering/Resolving]
  - Erythema [Recovering/Resolving]
  - Dry skin [Recovering/Resolving]
  - Pain [Recovering/Resolving]
  - Weight increased [Recovering/Resolving]
  - Arrhythmia [Recovering/Resolving]
  - Myalgia [Recovering/Resolving]
  - Muscle contractions involuntary [Recovering/Resolving]
  - Bradyphrenia [Recovering/Resolving]

NARRATIVE: CASE EVENT DATE: 201909
